FAERS Safety Report 11429816 (Version 1)
Quarter: 2015Q3

REPORT INFORMATION
  Report Type: Spontaneous
  Country: US (occurrence: US)
  Receive Date: 20150828
  Receipt Date: 20150828
  Transmission Date: 20151125
  Serious: No
  Sender: FDA-Public Use
  Company Number: US-ROCHE-1253848

PATIENT
  Sex: Male
  Weight: 70.98 kg

DRUGS (2)
  1. PEGASYS [Suspect]
     Active Substance: PEGINTERFERON ALFA-2A
     Indication: CHRONIC HEPATITIS C
     Route: 058
     Dates: start: 20130626
  2. RIBASPHERE [Suspect]
     Active Substance: RIBAVIRIN
     Indication: CHRONIC HEPATITIS C
     Dosage: 5 PILLS DAILY DIVIDED DOSES ORALLY 600/400
     Route: 048
     Dates: start: 20130626

REACTIONS (3)
  - Skin odour abnormal [Unknown]
  - Irritability [Unknown]
  - Weight decreased [Unknown]
